FAERS Safety Report 6931501-X (Version None)
Quarter: 2010Q3

REPORT INFORMATION
  Report Type: 
  Country: None (occurrence: None)
  Receive Date: 20100816
  Receipt Date: 20100805
  Transmission Date: 20110219
  Serious: Yes (Hospitalization)
  Sender: FDA-Public Use
  Company Number: CLOF-10551

PATIENT
  Age: 8 Year
  Sex: Female
  Weight: 19.5 kg

DRUGS (14)
  1. CLOFARABINE (CLOFARABINE) [Suspect]
     Indication: ACUTE LYMPHOCYTIC LEUKAEMIA
     Dosage: 32 MG, QDX5, INTRAVENOUS ; 32 MG, QD, INTRAVENOUS
     Route: 042
     Dates: start: 20070413, end: 20070417
  2. CLOFARABINE (CLOFARABINE) [Suspect]
     Indication: ACUTE LYMPHOCYTIC LEUKAEMIA
     Dosage: 32 MG, QDX5, INTRAVENOUS ; 32 MG, QD, INTRAVENOUS
     Route: 042
     Dates: start: 20070525, end: 20070528
  3. CLOFARABINE (CLOFARABINE) [Suspect]
  4. ETOPOSIDE [Suspect]
     Indication: ACUTE LYMPHOCYTIC LEUKAEMIA
     Dosage: 81 MG, QDX5, INTRAVENOUS ; 81 MG, QD, INTRAVENOUS
     Route: 042
     Dates: start: 20070413, end: 20070417
  5. ETOPOSIDE [Suspect]
     Indication: ACUTE LYMPHOCYTIC LEUKAEMIA
     Dosage: 81 MG, QDX5, INTRAVENOUS ; 81 MG, QD, INTRAVENOUS
     Route: 042
     Dates: start: 20070525, end: 20070528
  6. CYCLOPHOSPHAMIDE [Suspect]
     Indication: ACUTE LYMPHOCYTIC LEUKAEMIA
     Dosage: 356 MG, QDX5, INTRAVENOUS ; 356 MG, QD, INTRAVENOUS
     Route: 042
     Dates: start: 20070413, end: 20070418
  7. CYCLOPHOSPHAMIDE [Suspect]
     Indication: ACUTE LYMPHOCYTIC LEUKAEMIA
     Dosage: 356 MG, QDX5, INTRAVENOUS ; 356 MG, QD, INTRAVENOUS
     Route: 042
     Dates: start: 20070526, end: 20070529
  8. ZOFRAN [Concomitant]
  9. ATIVAN [Concomitant]
  10. FILGRASTIM (FILGRASTIM) [Concomitant]
  11. ACYCLOVIR [Concomitant]
  12. MOXIFLOXACIN HCL [Concomitant]
  13. FLUCONAZOLE [Concomitant]
  14. DAPSONE [Concomitant]

REACTIONS (15)
  - BK VIRUS INFECTION [None]
  - BLOOD PRESSURE DIASTOLIC DECREASED [None]
  - CULTURE URINE POSITIVE [None]
  - FAECAL INCONTINENCE [None]
  - HAEMORRHAGE URINARY TRACT [None]
  - HEART RATE INCREASED [None]
  - NASAL CONGESTION [None]
  - NAUSEA [None]
  - NEUTROPENIA [None]
  - RESPIRATORY RATE INCREASED [None]
  - RESTLESSNESS [None]
  - URINARY BLADDER HAEMORRHAGE [None]
  - URINARY TRACT INFECTION ENTEROCOCCAL [None]
  - VOMITING [None]
  - WHITE BLOOD CELL COUNT ABNORMAL [None]
